FAERS Safety Report 18198519 (Version 1)
Quarter: 2020Q3

REPORT INFORMATION
  Report Type: Spontaneous
  Country: US (occurrence: US)
  Receive Date: 20200826
  Receipt Date: 20200826
  Transmission Date: 20201103
  Serious: Yes (Life-Threatening, Hospitalization, Congenital Anomaly, Other)
  Sender: FDA-Public Use
  Company Number: US-SLATE RUN PHARMACEUTICALS-20US000266

PATIENT

DRUGS (9)
  1. MAGNESIUM SULFATE. [Concomitant]
     Active Substance: MAGNESIUM SULFATE
     Indication: MATERNAL EXPOSURE TIMING UNSPECIFIED
     Route: 064
  2. NITRIC OXIDE. [Concomitant]
     Active Substance: NITRIC OXIDE
     Indication: MATERNAL EXPOSURE TIMING UNSPECIFIED
     Route: 064
  3. AZITHROMYCIN USP [Suspect]
     Active Substance: AZITHROMYCIN
     Indication: MATERNAL EXPOSURE TIMING UNSPECIFIED
     Route: 064
  4. REMDESIVIR. [Concomitant]
     Active Substance: REMDESIVIR
     Indication: MATERNAL EXPOSURE TIMING UNSPECIFIED
     Route: 064
  5. PLASMA [Concomitant]
     Active Substance: HUMAN PLASMA
     Indication: MATERNAL EXPOSURE TIMING UNSPECIFIED
     Route: 064
  6. TOCILIZUMAB. [Concomitant]
     Active Substance: TOCILIZUMAB
     Indication: MATERNAL EXPOSURE TIMING UNSPECIFIED
     Route: 064
  7. HYDROXYCHLOROQUINE [Concomitant]
     Active Substance: HYDROXYCHLOROQUINE
     Indication: MATERNAL EXPOSURE TIMING UNSPECIFIED
     Route: 064
  8. HEPARIN [Concomitant]
     Active Substance: HEPARIN SODIUM
     Indication: MATERNAL EXPOSURE TIMING UNSPECIFIED
     Route: 064
  9. BETAMETHASONE. [Concomitant]
     Active Substance: BETAMETHASONE
     Indication: MATERNAL EXPOSURE TIMING UNSPECIFIED
     Dosage: 1 DOSAGE FORM
     Route: 064

REACTIONS (15)
  - Neonatal respiratory distress syndrome [Unknown]
  - Arrhythmia neonatal [Unknown]
  - Coagulopathy [Unknown]
  - Patent ductus arteriosus [Unknown]
  - Tuberous sclerosis complex [Unknown]
  - Neonatal respiratory failure [Unknown]
  - Umbilical cord around neck [Unknown]
  - Newborn persistent pulmonary hypertension [Unknown]
  - Apgar score low [Unknown]
  - Meconium in amniotic fluid [Unknown]
  - Premature baby [Unknown]
  - Intraventricular haemorrhage neonatal [Unknown]
  - Atrial septal defect [Unknown]
  - Neonatal hypotension [Unknown]
  - Foetal exposure during pregnancy [Unknown]
